FAERS Safety Report 10592795 (Version 1)
Quarter: 2014Q4

REPORT INFORMATION
  Report Type: Spontaneous
  Country: US (occurrence: None)
  Receive Date: 20141118
  Receipt Date: 20141118
  Transmission Date: 20150529
  Serious: Yes (Hospitalization)
  Sender: FDA-Public Use
  Company Number: None

PATIENT
  Age: 52 Year
  Sex: Male
  Weight: 120 kg

DRUGS (19)
  1. GABAPENTIN(NEURONTIN) [Concomitant]
  2. METOPROLOL TARTRATE(LOPRESSOR) [Concomitant]
  3. PANTOPRAZOLE(PROTONIX) [Concomitant]
  4. OLANAZAPINE(ZYRPEXA ZYDIS) [Concomitant]
  5. INSULIN LISPRO(HUMALOG) [Concomitant]
  6. ONDANSETRON(ZOFRAN) [Concomitant]
  7. GLUCAGON(GLUCAGON) [Concomitant]
  8. VIIBRYD [Concomitant]
     Active Substance: VILAZODONE HYDROCHLORIDE
  9. ALBUTEROL(PROVENTIL) [Concomitant]
  10. INSULIN LISPRO(HUMALOG) [Concomitant]
  11. INSULIN GLARGINE(LANTUS) [Concomitant]
  12. IPILIMUMAB [Suspect]
     Active Substance: IPILIMUMAB
     Indication: MALIGNANT MELANOMA
     Dates: start: 20140701, end: 20141001
  13. NICOTINE(HABITROL) [Concomitant]
  14. TRIAMCINOLONE ACETONIDE(KENALOG) [Concomitant]
  15. ACETAMINOPHEN(TYELNOL) [Concomitant]
  16. TRYPSIN-BALSAM-CASTOR OIL (VASOLEX) [Concomitant]
  17. PREDNISONE TABLET [Concomitant]
  18. DULCOLAX (BISACODYL) [Concomitant]
     Active Substance: BISACODYL
  19. ALBUTEROL(PROVENTIL) NEBULIZER SOLUTION [Concomitant]

REACTIONS (2)
  - Pulmonary toxicity [None]
  - Acute respiratory failure [None]

NARRATIVE: CASE EVENT DATE: 20141107
